FAERS Safety Report 10360917 (Version 1)
Quarter: 2014Q3

REPORT INFORMATION
  Report Type: Spontaneous
  Country: US (occurrence: US)
  Receive Date: 20140804
  Receipt Date: 20140804
  Transmission Date: 20150326
  Serious: Yes (Other)
  Sender: FDA-Public Use
  Company Number: US-PFIZER INC-2014212871

PATIENT
  Age: 76 Year
  Sex: Male
  Weight: 97.51 kg

DRUGS (3)
  1. ADVIL [Suspect]
     Active Substance: IBUPROFEN
     Dosage: 400 MG, ONCE A DAY
  2. ADVIL [Suspect]
     Active Substance: IBUPROFEN
     Dosage: 800 MG, ONCE A DAY
  3. ADVIL [Suspect]
     Active Substance: IBUPROFEN
     Dosage: 1200 MG, ONCE A DAY

REACTIONS (4)
  - Overdose [Unknown]
  - Blood urine present [Unknown]
  - Blood disorder [Unknown]
  - Haemorrhage [Unknown]
